FAERS Safety Report 21898151 (Version 1)
Quarter: 2023Q1

REPORT INFORMATION
  Report Type: Report from Study
  Country: JP (occurrence: JP)
  Receive Date: 20230123
  Receipt Date: 20230123
  Transmission Date: 20230418
  Serious: Yes (Other)
  Sender: FDA-Public Use
  Company Number: JP-ABBVIE-4239672

PATIENT
  Sex: Female

DRUGS (1)
  1. GLECAPREVIR\PIBRENTASVIR [Suspect]
     Active Substance: GLECAPREVIR\PIBRENTASVIR
     Indication: Hepatitis C
     Route: 048
     Dates: start: 20221213

REACTIONS (9)
  - Internal haemorrhage [Not Recovered/Not Resolved]
  - Chills [Recovered/Resolved]
  - Malaise [Not Recovered/Not Resolved]
  - Headache [Not Recovered/Not Resolved]
  - Decreased appetite [Unknown]
  - Impaired healing [Unknown]
  - Abdominal pain upper [Unknown]
  - Fall [Unknown]
  - Joint swelling [Unknown]

NARRATIVE: CASE EVENT DATE: 20221213
